FAERS Safety Report 5764751-9 (Version None)
Quarter: 2008Q2

REPORT INFORMATION
  Report Type: 
  Country: None (occurrence: None)
  Receive Date: 20080611
  Receipt Date: 20080602
  Transmission Date: 20081010
  Serious: Yes (Hospitalization)
  Sender: FDA-Public Use
  Company Number: ES-WYE-G01628908

PATIENT
  Age: 64 Year
  Sex: Female

DRUGS (7)
  1. ORFIDAL [Suspect]
     Route: 048
     Dates: start: 19940101, end: 20080315
  2. HALOPERIDOL [Suspect]
     Indication: DISORIENTATION
     Route: 042
     Dates: start: 20080310, end: 20080315
  3. LITHIUM CARBONATE [Concomitant]
     Route: 048
     Dates: start: 19880101, end: 20080315
  4. ANTABUSE [Suspect]
     Indication: ALCOHOL DETOXIFICATION
     Route: 048
     Dates: start: 20070901, end: 20080315
  5. ETUMINA [Suspect]
     Indication: BIPOLAR DISORDER
     Route: 048
     Dates: start: 19940101, end: 20080315
  6. VANDRAL RETARD [Suspect]
     Indication: BIPOLAR DISORDER
     Route: 048
     Dates: start: 20000101, end: 20080315
  7. AKINETON [Suspect]
     Dosage: UNKNOWN
     Route: 048
     Dates: start: 20060101, end: 20080315

REACTIONS (6)
  - BLOOD CREATINE PHOSPHOKINASE INCREASED [None]
  - CONFUSIONAL STATE [None]
  - HYPERNATRAEMIA [None]
  - METABOLIC ACIDOSIS [None]
  - NEUROLEPTIC MALIGNANT SYNDROME [None]
  - PYREXIA [None]
